FAERS Safety Report 22367475 (Version 1)
Quarter: 2023Q2

REPORT INFORMATION
  Report Type: Spontaneous
  Country: DE (occurrence: DE)
  Receive Date: 20230525
  Receipt Date: 20230525
  Transmission Date: 20230721
  Serious: Yes (Hospitalization, Congenital Anomaly, Other)
  Sender: FDA-Public Use
  Company Number: None

PATIENT
  Sex: Male
  Weight: 2 kg

DRUGS (3)
  1. LEVETIRACETAM [Suspect]
     Active Substance: LEVETIRACETAM
     Indication: Product used for unknown indication
     Dosage: UNKNOWN
     Route: 064
  2. AMOXICILLIN [Concomitant]
     Active Substance: AMOXICILLIN
     Indication: Product used for unknown indication
     Dosage: MOTHER DOSE:2000 [MG/D (2X1000) ]
     Route: 064
  3. LEVOTHYROXINE SODIUM [Concomitant]
     Active Substance: LEVOTHYROXINE SODIUM
     Indication: Product used for unknown indication
     Dosage: MOTHER DOSE: 50 [G/D ]
     Route: 064

REACTIONS (6)
  - Pericardial effusion [Unknown]
  - Urethral atresia [Not Recovered/Not Resolved]
  - Cardiac hypertrophy [Unknown]
  - Foetal megacystis [Recovered/Resolved]
  - Foetal exposure during pregnancy [Unknown]
  - Vesicoureteric reflux [Not Recovered/Not Resolved]
